FAERS Safety Report 21484132 (Version 1)
Quarter: 2022Q4

REPORT INFORMATION
  Report Type: Other
  Country: FR (occurrence: FR)
  Receive Date: 20221020
  Receipt Date: 20221020
  Transmission Date: 20230112
  Serious: Yes (Hospitalization)
  Sender: FDA-Public Use
  Company Number: None

PATIENT
  Age: 35 Year
  Sex: Male

DRUGS (3)
  1. TACROLIMUS [Interacting]
     Active Substance: TACROLIMUS
     Indication: Autoimmune hepatitis
     Dosage: UNK UNK, UNKNOWN FREQ. (NP)
     Route: 048
     Dates: end: 20220805
  2. TACROLIMUS [Interacting]
     Active Substance: TACROLIMUS
     Indication: Autoimmune hepatitis
     Route: 048
     Dates: start: 202109, end: 20220730
  3. PAXLOVID [Interacting]
     Active Substance: NIRMATRELVIR\RITONAVIR
     Indication: COVID-19
     Route: 048
     Dates: end: 20220803

REACTIONS (3)
  - Drug level increased [Recovered/Resolved]
  - Drug interaction [Recovered/Resolved]
  - Off label use [Unknown]

NARRATIVE: CASE EVENT DATE: 20210901
